FAERS Safety Report 23280877 (Version 1)
Quarter: 2023Q4

REPORT INFORMATION
  Report Type: Spontaneous
  Country: US (occurrence: US)
  Receive Date: 20231211
  Receipt Date: 20231211
  Transmission Date: 20240110
  Serious: No
  Sender: FDA-Public Use
  Company Number: US-NOVEN PHARMACEUTICALS, INC.-2022-NOV-US001206

PATIENT
  Age: 56 Year
  Sex: Female

DRUGS (2)
  1. ESTRADIOL [Suspect]
     Active Substance: ESTRADIOL
     Indication: Oestrogen deficiency
     Dosage: 0.0375 MG, UNKNOWN
     Route: 062
     Dates: start: 2022
  2. ESTRADIOL [Suspect]
     Active Substance: ESTRADIOL
     Indication: Menopause
     Dosage: 0.0375 MG, UNKNOWN
     Route: 062
     Dates: start: 202210

REACTIONS (1)
  - Nasopharyngitis [Recovering/Resolving]

NARRATIVE: CASE EVENT DATE: 20221220
